FAERS Safety Report 6971539-X (Version None)
Quarter: 2010Q3

REPORT INFORMATION
  Report Type: 
  Country: None (occurrence: None)
  Receive Date: 20100903
  Receipt Date: 20100821
  Transmission Date: 20110219
  Serious: Yes (Hospitalization, Other)
  Sender: FDA-Public Use
  Company Number: 2010AP001811

PATIENT
  Age: 55 Year
  Sex: Male

DRUGS (6)
  1. CITALOPRAM HYDROBROMIDE [Suspect]
     Dosage: ;UNK;
  2. ACETAMINOPHEN [Concomitant]
  3. HYROCODONE W/ ACETAMINOPHEN [Concomitant]
  4. ATORVASTATIN CALCIUM [Concomitant]
  5. METAXALONE [Concomitant]
  6. VERAPAMIL [Concomitant]

REACTIONS (4)
  - CEREBRAL VASOCONSTRICTION [None]
  - INTRACRANIAL ANEURYSM [None]
  - SUBARACHNOID HAEMORRHAGE [None]
  - VASCULITIS CEREBRAL [None]
